FAERS Safety Report 8303795-X (Version None)
Quarter: 2012Q2

REPORT INFORMATION
  Report Type: 
  Country: None (occurrence: None)
  Receive Date: 20120423
  Receipt Date: 20120413
  Transmission Date: 20120825
  Serious: No
  Sender: FDA-Public Use
  Company Number: PHHY2012FR027933

PATIENT
  Age: 47 Year
  Sex: Male

DRUGS (2)
  1. LASIX [Concomitant]
     Indication: OEDEMA
     Dates: start: 20080901
  2. TASIGNA [Suspect]
     Indication: CHRONIC MYELOID LEUKAEMIA
     Dosage: 600 MG, DAILY
     Route: 048
     Dates: start: 20111017

REACTIONS (4)
  - LIBIDO DECREASED [None]
  - ORGANIC ERECTILE DYSFUNCTION [None]
  - HAIR GROWTH ABNORMAL [None]
  - NIGHT SWEATS [None]
